FAERS Safety Report 9798742 (Version 1)
Quarter: 2014Q1

REPORT INFORMATION
  Report Type: Spontaneous
  Country: US (occurrence: US)
  Receive Date: 20140106
  Receipt Date: 20140106
  Transmission Date: 20141002
  Serious: No
  Sender: FDA-Public Use
  Company Number: US-GILEAD-2010-0029989

PATIENT
  Age: 52 Year
  Sex: Female

DRUGS (15)
  1. LETAIRIS [Suspect]
     Indication: PULMONARY ARTERIAL HYPERTENSION
     Route: 048
     Dates: start: 20080325
  2. SYMBICORT [Concomitant]
  3. XANAX [Concomitant]
  4. MVI [Concomitant]
  5. ASPIRIN [Concomitant]
  6. METAMUCIL [Concomitant]
  7. DARVOCET [Concomitant]
  8. ZOLOFT [Concomitant]
  9. VASOTEC [Concomitant]
  10. TOPROL XL [Concomitant]
  11. WELCHOL [Concomitant]
  12. LIPITOR [Concomitant]
  13. TRICOR [Concomitant]
  14. OMEGA 3 [Concomitant]
  15. BLACK COHOSH [Concomitant]

REACTIONS (1)
  - Anaemia [Not Recovered/Not Resolved]
